FAERS Safety Report 5245273-0 (Version None)
Quarter: 2007Q1

REPORT INFORMATION
  Report Type: 
  Country: None (occurrence: None)
  Receive Date: 20070223
  Receipt Date: 20070209
  Transmission Date: 20070707
  Serious: No
  Sender: FDA-Public Use
  Company Number: 534

PATIENT
  Age: 55 Year
  Sex: Male
  Weight: 80 kg

DRUGS (8)
  1. FLOLAN [Suspect]
     Indication: PULMONARY HYPERTENSION
     Dosage: 26NGKM PER DAY
     Route: 042
     Dates: start: 20040801
  2. PENTASA [Concomitant]
     Dosage: 760MG THREE TIMES PER DAY
     Route: 048
  3. PROTONIX [Concomitant]
     Dosage: 40MG PER DAY
     Route: 048
  4. METOPROLOL SUCCINATE [Concomitant]
     Dosage: 25MG TWICE PER DAY
     Route: 048
  5. GEMFIBROZIL [Concomitant]
     Dosage: 600MG TWICE PER DAY
     Route: 048
  6. CIPRO [Concomitant]
     Dosage: 500MG PER DAY
     Route: 048
  7. COUMADIN [Concomitant]
     Dosage: 7.5MG PER DAY
     Route: 048
  8. INFUSION FLUID [Concomitant]

REACTIONS (3)
  - CATHETER RELATED COMPLICATION [None]
  - DRUG ERUPTION [None]
  - PHARMACEUTICAL PRODUCT COMPLAINT [None]
